FAERS Safety Report 7955404-7 (Version None)
Quarter: 2011Q4

REPORT INFORMATION
  Report Type: 
  Country: None (occurrence: None)
  Receive Date: 20111202
  Receipt Date: 20111130
  Transmission Date: 20120403
  Serious: Yes (Death)
  Sender: FDA-Public Use
  Company Number: JP-ABBOTT-11P-087-0879566-00

PATIENT
  Age: 31 Year
  Sex: Male

DRUGS (2)
  1. RITONAVIR [Suspect]
     Indication: PRODUCT USED FOR UNKNOWN INDICATION
  2. LOPINAVIR/RITONAVIR [Suspect]
     Indication: PRODUCT USED FOR UNKNOWN INDICATION

REACTIONS (1)
  - ANEURYSM RUPTURED [None]
